FAERS Safety Report 9646182 (Version 3)
Quarter: 2013Q4

REPORT INFORMATION
  Report Type: Spontaneous
  Country: US (occurrence: US)
  Receive Date: 20131025
  Receipt Date: 20131101
  Transmission Date: 20140711
  Serious: Yes (Death, Life-Threatening, Hospitalization, Other)
  Sender: FDA-Public Use
  Company Number: US-OPTIMER-20130345

PATIENT
  Sex: Male

DRUGS (7)
  1. DIFICID [Suspect]
     Indication: CLOSTRIDIUM DIFFICILE COLITIS
     Dosage: UNK
     Route: 048
     Dates: end: 20130808
  2. METRONIDAZOLE [Concomitant]
     Indication: CLOSTRIDIAL INFECTION
     Dosage: UNK
     Route: 065
  3. CARVEDILOL [Concomitant]
     Dosage: UNK
     Route: 065
  4. ROSUVASTATIN [Concomitant]
     Dosage: UNK
     Route: 065
  5. FUROSEMIDE [Concomitant]
     Dosage: UNK
     Route: 065
  6. FISH OIL [Concomitant]
     Dosage: UNK
     Route: 065
  7. POTASSIUM CHLORIDE [Concomitant]
     Dosage: UNK
     Route: 065

REACTIONS (15)
  - Pneumonia [Fatal]
  - Sepsis syndrome [Fatal]
  - Acute respiratory failure [Not Recovered/Not Resolved]
  - Renal failure acute [Not Recovered/Not Resolved]
  - Cerebrovascular accident [Not Recovered/Not Resolved]
  - Brain herniation [Not Recovered/Not Resolved]
  - Brain oedema [Not Recovered/Not Resolved]
  - Coma [Not Recovered/Not Resolved]
  - Platelet count decreased [Not Recovered/Not Resolved]
  - Bone pain [Not Recovered/Not Resolved]
  - Hypotension [Not Recovered/Not Resolved]
  - Mental status changes [Not Recovered/Not Resolved]
  - Clostridium difficile colitis [Not Recovered/Not Resolved]
  - Disease recurrence [Not Recovered/Not Resolved]
  - Incorrect route of drug administration [Not Recovered/Not Resolved]
